FAERS Safety Report 12442042 (Version 1)
Quarter: 2016Q2

REPORT INFORMATION
  Report Type: Spontaneous
  Country: US (occurrence: None)
  Receive Date: 20160606
  Receipt Date: 20160606
  Transmission Date: 20160815
  Serious: Yes (Hospitalization)
  Sender: FDA-Public Use
  Company Number: None

PATIENT
  Age: 61 Year
  Sex: Male
  Weight: 113.2 kg

DRUGS (1)
  1. CLONAZEPAM. [Suspect]
     Active Substance: CLONAZEPAM
     Indication: BIPOLAR I DISORDER
     Route: 048
     Dates: start: 20010208, end: 20160520

REACTIONS (3)
  - Intentional product misuse [None]
  - Fall [None]
  - Dizziness [None]

NARRATIVE: CASE EVENT DATE: 20160410
